FAERS Safety Report 25360278 (Version 1)
Quarter: 2025Q2

REPORT INFORMATION
  Report Type: Spontaneous
  Country: US (occurrence: US)
  Receive Date: 20250527
  Receipt Date: 20250527
  Transmission Date: 20250716
  Serious: Yes (Hospitalization)
  Sender: ACCORD
  Company Number: US-Accord-462147

PATIENT
  Sex: Female

DRUGS (3)
  1. METHOTREXATE [Suspect]
     Active Substance: METHOTREXATE
     Indication: Non-Hodgkin^s lymphoma
  2. TEMODAR [Concomitant]
     Active Substance: TEMOZOLOMIDE
  3. RITUXAN [Concomitant]
     Active Substance: RITUXIMAB

REACTIONS (1)
  - Overdose [Unknown]
